FAERS Safety Report 5486287-5 (Version None)
Quarter: 2007Q4

REPORT INFORMATION
  Report Type: 
  Country: None (occurrence: None)
  Receive Date: 20071016
  Receipt Date: 20071008
  Transmission Date: 20080405
  Serious: Yes (Other)
  Sender: FDA-Public Use
  Company Number: PHBS2007FI16721

PATIENT
  Age: 67 Year
  Sex: Female

DRUGS (3)
  1. PARACETAMOL [Concomitant]
     Indication: PAIN
     Dosage: UNK, PRN
  2. OPAMOX [Concomitant]
     Dosage: 45 MG/DAY
  3. LEPONEX [Suspect]
     Dosage: UP TO 150 MG/DAY
     Dates: start: 20060101

REACTIONS (7)
  - ABDOMINAL PAIN UPPER [None]
  - ALANINE AMINOTRANSFERASE INCREASED [None]
  - ASPARTATE AMINOTRANSFERASE INCREASED [None]
  - BILIARY DILATATION [None]
  - BLOOD BILIRUBIN INCREASED [None]
  - GAMMA-GLUTAMYLTRANSFERASE INCREASED [None]
  - HEPATIC ENZYME INCREASED [None]
